FAERS Safety Report 25200576 (Version 2)
Quarter: 2025Q2

REPORT INFORMATION
  Report Type: Spontaneous
  Country: US (occurrence: US)
  Receive Date: 20250415
  Receipt Date: 20250425
  Transmission Date: 20250717
  Serious: Yes (Hospitalization, Other)
  Sender: VERTEX
  Company Number: US-VERTEX PHARMACEUTICALS-2025-005732

PATIENT
  Age: 25 Year
  Sex: Male

DRUGS (1)
  1. TRIKAFTA [Suspect]
     Active Substance: ELEXACAFTOR\IVACAFTOR\TEZACAFTOR
     Indication: Cystic fibrosis
     Route: 048

REACTIONS (7)
  - Hepatic cirrhosis [Unknown]
  - Varices oesophageal [Unknown]
  - Oesophagitis [Unknown]
  - Intestinal obstruction [Unknown]
  - Treatment noncompliance [Not Recovered/Not Resolved]
  - Pancreatic disorder [Not Recovered/Not Resolved]
  - Gastrointestinal disorder [Not Recovered/Not Resolved]
